FAERS Safety Report 7454290-1 (Version None)
Quarter: 2011Q2

REPORT INFORMATION
  Report Type: 
  Country: None (occurrence: None)
  Receive Date: 20110503
  Receipt Date: 20110425
  Transmission Date: 20111010
  Serious: Yes (Hospitalization)
  Sender: FDA-Public Use
  Company Number: US-US-EMD SERONO, INC.-7054424

PATIENT
  Sex: Female
  Weight: 117 kg

DRUGS (11)
  1. REBIF [Suspect]
     Indication: MULTIPLE SCLEROSIS
     Route: 058
     Dates: start: 20101206
  2. TOPIRAMATE [Concomitant]
     Dates: start: 20110222
  3. FERROUS SULFATE TAB [Concomitant]
     Dates: start: 20110319
  4. AMPYRA [Concomitant]
     Dates: start: 20110209
  5. TIZANIDINE HCL [Concomitant]
     Dates: start: 20100929
  6. SIMETHICONE [Concomitant]
     Dates: start: 20100803
  7. SENNA [Concomitant]
     Dates: start: 20100607
  8. GABAPENTIN [Concomitant]
     Dates: start: 20110222
  9. DOCUSATE SODIUM [Concomitant]
     Dates: start: 20100607
  10. VITAMIN D [Concomitant]
     Dates: start: 20100607
  11. SUMATRIPTAN SUCCINATE [Concomitant]
     Route: 048
     Dates: start: 20101229

REACTIONS (4)
  - CONSTIPATION [None]
  - CHOLELITHIASIS [None]
  - PAIN [None]
  - PYREXIA [None]
